FAERS Safety Report 5324930-1 (Version None)
Quarter: 2007Q2

REPORT INFORMATION
  Report Type: 
  Country: None (occurrence: None)
  Receive Date: 20070515
  Receipt Date: 20070506
  Transmission Date: 20071010
  Serious: Yes (Other)
  Sender: FDA-Public Use
  Company Number: US-AMGEN-STX223391

PATIENT
  Sex: Female

DRUGS (1)
  1. ENBREL [Suspect]
     Indication: PSORIATIC ARTHROPATHY
     Route: 058
     Dates: start: 20010501

REACTIONS (10)
  - CARDIOMYOPATHY [None]
  - CYSTITIS [None]
  - DERMATITIS CONTACT [None]
  - INJECTION SITE IRRITATION [None]
  - JOINT STIFFNESS [None]
  - JOINT SWELLING [None]
  - OEDEMA PERIPHERAL [None]
  - TOOTH EXTRACTION [None]
  - TOOTH INFECTION [None]
  - VULVOVAGINAL MYCOTIC INFECTION [None]
